FAERS Safety Report 4442876-8 (Version None)
Quarter: 2004Q3

REPORT INFORMATION
  Report Type: 
  Country: None (occurrence: None)
  Receive Date: 20040907
  Receipt Date: 20040907
  Transmission Date: 20050211
  Serious: No
  Sender: FDA-Public Use
  Company Number: None

PATIENT
  Age: 64 Year
  Sex: Female
  Weight: 104.3273 kg

DRUGS (1)
  1. TRAVOPROST OPHTH 0.004% [Suspect]
     Dosage: 1 GTT OU QHS
     Route: 047
     Dates: start: 20040505, end: 20040528

REACTIONS (1)
  - KERATITIS [None]
